FAERS Safety Report 14940117 (Version 1)
Quarter: 2018Q2

REPORT INFORMATION
  Report Type: Spontaneous
  Country: US (occurrence: US)
  Receive Date: 20180507
  Receipt Date: 20180507
  Transmission Date: 20180711
  Serious: Yes (Disabling)
  Sender: FDA-Public Use
  Company Number: None

PATIENT
  Age: 40 Year
  Sex: Female
  Weight: 136.08 kg

DRUGS (1)
  1. NUCYNTA [Suspect]
     Active Substance: TAPENTADOL HYDROCHLORIDE

REACTIONS (4)
  - Pain [None]
  - Spinal disorder [None]
  - Device issue [None]
  - Arachnoiditis [None]

NARRATIVE: CASE EVENT DATE: 20170721
